FAERS Safety Report 5464502-1 (Version None)
Quarter: 2007Q3

REPORT INFORMATION
  Report Type: 
  Country: None (occurrence: None)
  Receive Date: 20070921
  Receipt Date: 20070911
  Transmission Date: 20080115
  Serious: Yes (Hospitalization)
  Sender: FDA-Public Use
  Company Number: US-GENENTECH-246863

PATIENT
  Sex: Female

DRUGS (6)
  1. BEVACIZUMAB [Suspect]
     Indication: BREAST CANCER
     Dosage: 1775 MG, Q3W
     Route: 042
     Dates: start: 20070718
  2. TAXOTERE [Concomitant]
     Indication: BREAST CANCER
  3. PROZAC [Concomitant]
     Indication: DRUG USE FOR UNKNOWN INDICATION
     Dosage: 20 MG, QD
     Route: 048
  4. DARVON [Concomitant]
     Indication: DRUG USE FOR UNKNOWN INDICATION
     Dosage: 65 MG, Q4H
     Dates: start: 20070717
  5. KEFLEX [Concomitant]
     Indication: DRUG USE FOR UNKNOWN INDICATION
     Dosage: 250 MG, QID
     Route: 048
     Dates: start: 20070807
  6. NIFEDIPINE [Concomitant]
     Indication: DRUG USE FOR UNKNOWN INDICATION

REACTIONS (2)
  - CHEST PAIN [None]
  - HYPERTENSION [None]
